FAERS Safety Report 23512793 (Version 1)
Quarter: 2024Q1

REPORT INFORMATION
  Report Type: Spontaneous
  Country: US (occurrence: US)
  Receive Date: 20240212
  Receipt Date: 20240212
  Transmission Date: 20240410
  Serious: No
  Sender: FDA-Public Use
  Company Number: US-ALCON LABORATORIES-ALC2023US005194

PATIENT
  Sex: Female

DRUGS (1)
  1. RHOPRESSA [Suspect]
     Active Substance: NETARSUDIL MESYLATE
     Indication: Dry eye
     Dosage: UNK
     Route: 047

REACTIONS (4)
  - Rash [Recovered/Resolved]
  - Skin exfoliation [Recovered/Resolved]
  - Eyelid exfoliation [Recovered/Resolved]
  - Lacrimation increased [Recovered/Resolved]
